FAERS Safety Report 5766965-0 (Version None)
Quarter: 2008Q2

REPORT INFORMATION
  Report Type: 
  Country: None (occurrence: None)
  Receive Date: 20080612
  Receipt Date: 20080603
  Transmission Date: 20081010
  Serious: Yes (Hospitalization)
  Sender: FDA-Public Use
  Company Number: CL-WATSON-2008-03411

PATIENT
  Age: 27 Year
  Sex: Female
  Weight: 65 kg

DRUGS (1)
  1. FUROSEMIDE (WATSON LABORATORIES) [Suspect]
     Indication: OEDEMA
     Dosage: 40 MG - 120 MG, DAILY
     Route: 048

REACTIONS (3)
  - ELECTROCARDIOGRAM CHANGE [None]
  - HYPOKALAEMIA [None]
  - HYPOVOLAEMIA [None]
